FAERS Safety Report 8857660 (Version 2)
Quarter: 2013Q1

REPORT INFORMATION
  Report Type: Spontaneous
  Country: US (occurrence: US)
  Receive Date: 20121024
  Receipt Date: 20130108
  Transmission Date: 20140127
  Serious: Yes (Other)
  Sender: FDA-Public Use
  Company Number: US-PFIZER INC-2012264421

PATIENT
  Sex: Female

DRUGS (3)
  1. LYRICA [Suspect]
     Dosage: 75 MG, 2X/DAY
  2. LYRICA [Suspect]
     Dosage: 75 MG 2X/DAY, 1MORE CAPSULE OF 75MG ON THE SAME DAY, 2MORE CAPSULES OF 75MG ON SAME DAY
     Dates: start: 20121021
  3. XANAX [Concomitant]
     Dosage: 2 MG, UNK

REACTIONS (3)
  - Injury [Unknown]
  - Paraesthesia [Not Recovered/Not Resolved]
  - Irritability [Not Recovered/Not Resolved]
